FAERS Safety Report 9133661 (Version 1)
Quarter: 2013Q1

REPORT INFORMATION
  Report Type: Spontaneous
  Country: CH (occurrence: CH)
  Receive Date: 20130301
  Receipt Date: 20130301
  Transmission Date: 20140127
  Serious: Yes (Hospitalization, Other)
  Sender: FDA-Public Use
  Company Number: PHHY2012CH127916

PATIENT
  Age: 49 Year
  Sex: Female

DRUGS (10)
  1. TRILEPTAL [Suspect]
     Dosage: 600 MG, TID
     Route: 048
     Dates: start: 2009, end: 20121117
  2. ANAFRANIL [Suspect]
     Indication: PAIN
     Dosage: 75 MG, BID
     Route: 048
     Dates: start: 2009, end: 20121117
  3. LUDIOMIL [Suspect]
     Dosage: 50 MG, QD
     Route: 048
  4. PIPERACILINA + TAZOBACTAM [Concomitant]
     Indication: PNEUMONIA BACTERIAL
  5. CIPROXIN                                /DEN/ [Concomitant]
     Indication: PNEUMONIA BACTERIAL
     Dosage: 500 MG, BID
     Route: 048
  6. VANCOCIN [Concomitant]
     Indication: PNEUMONIA BACTERIAL
     Dosage: 500 MG, UNK
     Route: 041
  7. PANTOZOL [Concomitant]
     Route: 048
  8. TRANSTEC TTS [Concomitant]
     Indication: PAIN
     Route: 062
  9. NOVALGIN                                /SCH/ [Concomitant]
     Dosage: 40 GTT, QID
     Route: 048
  10. INDERAL [Concomitant]
     Dosage: 0.5 DF, TID
     Route: 048

REACTIONS (2)
  - Organising pneumonia [Recovering/Resolving]
  - Eosinophilia [Recovering/Resolving]
